FAERS Safety Report 6885795-X (Version None)
Quarter: 2010Q3

REPORT INFORMATION
  Report Type: 
  Country: None (occurrence: None)
  Receive Date: 20100729
  Receipt Date: 20081104
  Transmission Date: 20110219
  Serious: No
  Sender: FDA-Public Use
  Company Number: US-PFIZER INC-2008078075

PATIENT
  Sex: Female

DRUGS (6)
  1. CELEBREX [Suspect]
     Indication: MUSCULOSKELETAL PAIN
     Dates: start: 20080101, end: 20080910
  2. NEURONTIN [Concomitant]
  3. FOSAMAX [Concomitant]
  4. MOTRIN [Concomitant]
  5. ASCORBIC ACID [Concomitant]
  6. VITAMIN D [Concomitant]

REACTIONS (5)
  - DECREASED APPETITE [None]
  - MUSCULOSKELETAL PAIN [None]
  - RASH [None]
  - SKIN DISCOLOURATION [None]
  - WEIGHT DECREASED [None]
